FAERS Safety Report 5624177-5 (Version None)
Quarter: 2008Q1

REPORT INFORMATION
  Report Type: 
  Country: None (occurrence: None)
  Receive Date: 20080208
  Receipt Date: 20071219
  Transmission Date: 20080703
  Serious: Yes (Other)
  Sender: FDA-Public Use
  Company Number: 200714227BCC

PATIENT
  Age: 61 Year
  Sex: Female
  Weight: 66.6788 kg

DRUGS (7)
  1. ONE-A-DAY WOMEN'S TABLET [Suspect]
     Indication: VITAMIN SUPPLEMENTATION
     Dosage: ORAL
     Route: 048
  2. ASPIRIN [Suspect]
     Indication: PAIN
     Dosage: ORAL
     Route: 048
  3. ALKA-SELTZER (NOS) [Suspect]
     Indication: STOMACH DISCOMFORT
     Dosage: ORAL
     Route: 048
     Dates: start: 19980101
  4. VITAMIN E (NOS) [Concomitant]
  5. MOBIC [Concomitant]
  6. AVALIDE [Concomitant]
  7. LIPITOR [Concomitant]

REACTIONS (2)
  - BLOOD PRESSURE INCREASED [None]
  - STAG HORN CALCULUS [None]
